FAERS Safety Report 8423423-2 (Version None)
Quarter: 2012Q2

REPORT INFORMATION
  Report Type: 
  Country: None (occurrence: None)
  Receive Date: 20120608
  Receipt Date: 20120530
  Transmission Date: 20120825
  Serious: Yes (Other)
  Sender: FDA-Public Use
  Company Number: US-ASTRAZENECA-2012SE36489

PATIENT
  Age: 57 Year
  Sex: Female

DRUGS (15)
  1. NEXIUM [Suspect]
     Route: 048
  2. PROPRANOLOL [Concomitant]
  3. ZORCOR [Concomitant]
  4. SEROQUEL [Suspect]
     Route: 048
  5. DILAUDID [Concomitant]
  6. KLONOPIN [Concomitant]
  7. SYNTHROID [Concomitant]
  8. BUSPAR [Concomitant]
  9. PAMELOR [Concomitant]
  10. PAMELOR [Concomitant]
  11. ZOFRAN [Concomitant]
  12. GLUCOPHAGE [Concomitant]
  13. JANUVIA [Concomitant]
  14. MIRALAX [Concomitant]
  15. SUCRALFATE [Concomitant]

REACTIONS (7)
  - HYPERSENSITIVITY [None]
  - IRRITABLE BOWEL SYNDROME [None]
  - DIVERTICULITIS [None]
  - PANCREATITIS CHRONIC [None]
  - IMPAIRED GASTRIC EMPTYING [None]
  - INTERVERTEBRAL DISC DEGENERATION [None]
  - THYROID DISORDER [None]
